FAERS Safety Report 24855732 (Version 1)
Quarter: 2025Q1

REPORT INFORMATION
  Report Type: Spontaneous
  Country: TR (occurrence: TR)
  Receive Date: 20250117
  Receipt Date: 20250117
  Transmission Date: 20250408
  Serious: Yes (Other)
  Sender: RANBAXY
  Company Number: TR-SUN PHARMACEUTICAL INDUSTRIES LTD-2025R1-489063

PATIENT
  Age: 57 Year
  Sex: Male

DRUGS (2)
  1. DICLOFENAC [Suspect]
     Active Substance: DICLOFENAC
     Indication: Analgesic therapy
     Route: 065
  2. FLURBIPROFEN [Suspect]
     Active Substance: FLURBIPROFEN
     Indication: Analgesic therapy
     Route: 065

REACTIONS (3)
  - Hypoalbuminaemia [Recovered/Resolved]
  - Protein-losing gastroenteropathy [Recovered/Resolved]
  - Small intestinal obstruction [Recovered/Resolved]
